FAERS Safety Report 16806876 (Version 1)
Quarter: 2019Q3

REPORT INFORMATION
  Report Type: Spontaneous
  Country: US (occurrence: US)
  Receive Date: 20190913
  Receipt Date: 20190913
  Transmission Date: 20191005
  Serious: Yes (Hospitalization)
  Sender: FDA-Public Use
  Company Number: US-TEVA-2019-US-1106888

PATIENT
  Sex: Female

DRUGS (24)
  1. ALPRAZOLAM. [Concomitant]
     Active Substance: ALPRAZOLAM
  2. LEVOTHYROXIN [Concomitant]
     Active Substance: LEVOTHYROXINE
  3. ONDANSETRON [Concomitant]
     Active Substance: ONDANSETRON
  4. TOPIRAMATE. [Concomitant]
     Active Substance: TOPIRAMATE
  5. REGLAN [Concomitant]
     Active Substance: METOCLOPRAMIDE HYDROCHLORIDE
  6. ERYTHROMYCIN. [Concomitant]
     Active Substance: ERYTHROMYCIN
  7. OXYCODONE [Concomitant]
     Active Substance: OXYCODONE
  8. VITAMIN D3 [Concomitant]
     Active Substance: CHOLECALCIFEROL
  9. IRON [Concomitant]
     Active Substance: IRON
  10. DIAZEPAM. [Concomitant]
     Active Substance: DIAZEPAM
  11. EURAX [Concomitant]
     Active Substance: CROTAMITON
  12. GABAPENTIN. [Concomitant]
     Active Substance: GABAPENTIN
  13. RIZATRIPTAN. [Concomitant]
     Active Substance: RIZATRIPTAN
  14. VENLAFAXINE [Concomitant]
     Active Substance: VENLAFAXINE HYDROCHLORIDE
  15. EFFEXOR [Concomitant]
     Active Substance: VENLAFAXINE HYDROCHLORIDE
  16. ESOMEPRA MAG [Concomitant]
  17. MAXALT [Concomitant]
     Active Substance: RIZATRIPTAN BENZOATE
  18. EURA [Concomitant]
  19. COPAXONE [Suspect]
     Active Substance: GLATIRAMER ACETATE
     Indication: MULTIPLE SCLEROSIS
     Route: 058
     Dates: start: 20150519
  20. ESTRACE [Concomitant]
     Active Substance: ESTRADIOL
  21. MELATONIN [Concomitant]
     Active Substance: MELATONIN
  22. METHYLPHENID [Concomitant]
     Active Substance: METHYLPHENIDATE
  23. CALCIUM [Concomitant]
     Active Substance: CALCIUM
  24. VITAMIN E [Concomitant]
     Active Substance: .ALPHA.-TOCOPHEROL

REACTIONS (4)
  - Migraine [Not Recovered/Not Resolved]
  - Injection site bruising [Not Recovered/Not Resolved]
  - Speech disorder [Not Recovered/Not Resolved]
  - Memory impairment [Not Recovered/Not Resolved]
